FAERS Safety Report 24062274 (Version 1)
Quarter: 2024Q3

REPORT INFORMATION
  Report Type: Report from Study
  Country: CA (occurrence: CA)
  Receive Date: 20240708
  Receipt Date: 20240708
  Transmission Date: 20241017
  Serious: Yes (Other)
  Sender: TEVA
  Company Number: CA-TEVA-VS-3216706

PATIENT
  Age: 24 Year
  Sex: Female

DRUGS (1)
  1. AJOVY [Suspect]
     Active Substance: FREMANEZUMAB-VFRM
     Indication: Migraine prophylaxis
     Route: 058
     Dates: start: 20240614

REACTIONS (4)
  - Loss of consciousness [Unknown]
  - Nausea [Unknown]
  - Injection site discomfort [Unknown]
  - Fear of injection [Unknown]

NARRATIVE: CASE EVENT DATE: 20240601
